FAERS Safety Report 7136015-2 (Version None)
Quarter: 2010Q4

REPORT INFORMATION
  Report Type: 
  Country: None (occurrence: None)
  Receive Date: 20101204
  Receipt Date: 20101103
  Transmission Date: 20110411
  Serious: Yes (Other)
  Sender: FDA-Public Use
  Company Number: US-BAYER-200921945NA

PATIENT

DRUGS (6)
  1. MIRENA [Suspect]
     Indication: CONTRACEPTION
     Dosage: CONTINUOUS
     Route: 015
     Dates: start: 20081117, end: 20090306
  2. YAZ [Suspect]
     Route: 048
     Dates: end: 20081117
  3. ADVIL [Concomitant]
  4. ADVIL [Concomitant]
     Indication: HEADACHE
  5. CENTRUM PERFORMANCE [Concomitant]
  6. MINERAL TAB [Concomitant]

REACTIONS (7)
  - BLINDNESS UNILATERAL [None]
  - EYELID RETRACTION [None]
  - HORNER'S SYNDROME [None]
  - JOINT HYPEREXTENSION [None]
  - MIGRAINE WITH AURA [None]
  - MYDRIASIS [None]
  - PULSE PRESSURE DECREASED [None]
